FAERS Safety Report 13448020 (Version 2)
Quarter: 2017Q2

REPORT INFORMATION
  Report Type: Spontaneous
  Country: JP (occurrence: JP)
  Receive Date: 20170417
  Receipt Date: 20170425
  Transmission Date: 20170830
  Serious: No
  Sender: FDA-Public Use
  Company Number: JP-AMGEN-JPNSP2017059021

PATIENT
  Sex: Male

DRUGS (8)
  1. VECTIBIX [Suspect]
     Active Substance: PANITUMUMAB
     Indication: COLON CANCER
     Dosage: UNK UNK, Q2WEEKS
     Route: 041
     Dates: start: 201703
  2. IRINOTECAN HYDROCHLORIDE. [Suspect]
     Active Substance: IRINOTECAN HYDROCHLORIDE
     Indication: COLON CANCER
     Dosage: UNK
     Route: 041
     Dates: start: 201703
  3. LEUCOVORIN                         /00566702/ [Suspect]
     Active Substance: LEUCOVORIN
     Indication: COLON CANCER
     Dosage: UNK
     Route: 041
     Dates: start: 201703
  4. LEUCOVORIN                         /00566702/ [Suspect]
     Active Substance: LEUCOVORIN
     Dosage: UNK
     Route: 041
     Dates: start: 20170404
  5. VECTIBIX [Suspect]
     Active Substance: PANITUMUMAB
     Dosage: UNK UNK, Q2WEEKS
     Route: 041
     Dates: start: 20170404
  6. FLUOROURACIL. [Suspect]
     Active Substance: FLUOROURACIL
     Indication: COLON CANCER
     Dosage: UNK
     Route: 042
     Dates: start: 201703
  7. IRINOTECAN HYDROCHLORIDE. [Suspect]
     Active Substance: IRINOTECAN HYDROCHLORIDE
     Dosage: UNK
     Route: 041
     Dates: start: 20170404
  8. FLUOROURACIL. [Suspect]
     Active Substance: FLUOROURACIL
     Dosage: UNK
     Route: 042
     Dates: start: 20170404

REACTIONS (1)
  - Neutrophil count decreased [Recovered/Resolved]
